FAERS Safety Report 6971358-4 (Version None)
Quarter: 2010Q3

REPORT INFORMATION
  Report Type: 
  Country: None (occurrence: None)
  Receive Date: 20100908
  Receipt Date: 20100830
  Transmission Date: 20110219
  Serious: Yes (Hospitalization)
  Sender: FDA-Public Use
  Company Number: PHHO2010JP11409

PATIENT
  Sex: Male
  Weight: 49 kg

DRUGS (12)
  1. BLINDED ALISKIREN ALI+TAB+CF [Suspect]
     Indication: CARDIAC FAILURE
     Dosage: CODE NOT BROKEN
     Route: 048
     Dates: start: 20100309
  2. BLINDED ENALAPRIL COMP-ENA+ [Suspect]
     Indication: CARDIAC FAILURE
     Dosage: CODE NOT BROKEN
     Route: 048
     Dates: start: 20100309
  3. BLINDED NO TREATMENT RECEIVED NOMED [Suspect]
     Indication: CARDIAC FAILURE
     Dosage: CODE NOT BROKEN
     Route: 048
     Dates: start: 20100309
  4. ALISKIREN [Suspect]
     Indication: CARDIAC FAILURE
     Dosage: 150 MG DAILY
     Route: 048
     Dates: start: 20100216
  5. COMPARATOR ENALAPRIL [Suspect]
     Indication: CARDIAC FAILURE
     Dosage: 10MG DAILY
     Route: 048
     Dates: start: 20091223
  6. COMPARATOR ENALAPRIL [Suspect]
     Dosage: 20MG DAILY
     Route: 048
     Dates: start: 20100119
  7. WARFARIN POTASSIUM [Concomitant]
     Dosage: UNK
     Dates: start: 19991117
  8. SENNOSIDE [Concomitant]
  9. NICORANDIL [Concomitant]
     Dosage: UNK
     Dates: start: 20060420
  10. CARVEDILOL [Concomitant]
     Dosage: UNK
     Dates: start: 20090323
  11. SPIRONOLACTONE [Concomitant]
     Dosage: UNK
     Dates: start: 20091106
  12. FUROSEMIDE [Concomitant]
     Dosage: UNK
     Dates: start: 20090709

REACTIONS (5)
  - DECREASED APPETITE [None]
  - DEHYDRATION [None]
  - HYPOTENSION [None]
  - MALAISE [None]
  - RENAL IMPAIRMENT [None]
